FAERS Safety Report 22123249 (Version 1)
Quarter: 2023Q1

REPORT INFORMATION
  Report Type: Spontaneous
  Country: ES (occurrence: ES)
  Receive Date: 20230322
  Receipt Date: 20230322
  Transmission Date: 20230417
  Serious: Yes (Other)
  Sender: FDA-Public Use
  Company Number: None

PATIENT
  Age: 59 Year
  Sex: Female

DRUGS (3)
  1. RINVOQ [Suspect]
     Active Substance: UPADACITINIB
     Indication: Rheumatoid arthritis
     Route: 048
     Dates: start: 20221116, end: 20230123
  2. VIMOVO 500 mg/20 mg COMPRIMIDOS DE LIBERACION MODIFICADA , 60 compr... [Concomitant]
     Indication: Product used for unknown indication
     Route: 048
     Dates: start: 20220216
  3. DELTIUS 25.000 UI CAPSULAS DURAS, 4 capsulas [Concomitant]
     Indication: Product used for unknown indication
     Route: 048
     Dates: start: 20210331

REACTIONS (4)
  - Polyuria [Recovered/Resolved]
  - Abdominal distension [Recovered/Resolved]
  - Constipation [Recovered/Resolved]
  - Headache [Recovering/Resolving]

NARRATIVE: CASE EVENT DATE: 20221123
